FAERS Safety Report 5286223-0 (Version None)
Quarter: 2007Q2

REPORT INFORMATION
  Report Type: 
  Country: None (occurrence: None)
  Receive Date: 20070404
  Receipt Date: 20070326
  Transmission Date: 20071010
  Serious: Yes (Hospitalization)
  Sender: FDA-Public Use
  Company Number: 2007CG00500

PATIENT
  Age: 1 Day
  Sex: Male
  Weight: 3.3 kg

DRUGS (8)
  1. ZOMIG [Suspect]
     Route: 064
     Dates: start: 20050524, end: 20050812
  2. ASPEGIC 1000 [Suspect]
     Dosage: TWO TO THREE GRAMS PER WEEK
     Route: 064
     Dates: end: 20050815
  3. PERIDYS [Suspect]
     Route: 064
     Dates: start: 20050628, end: 20050815
  4. STILNOX [Suspect]
     Route: 064
     Dates: end: 20050815
  5. ZANTAC [Suspect]
     Dosage: 300 MG TO 600 MG PER DAY USED AS REQUIRED
     Route: 064
     Dates: start: 20050628, end: 20050815
  6. DEROXAT [Suspect]
     Route: 064
     Dates: start: 20050628, end: 20050815
  7. VOGALENE [Suspect]
     Route: 064
     Dates: start: 20050628, end: 20050815
  8. BETAINE CITRATE [Suspect]
     Route: 064
     Dates: start: 20050628, end: 20050815

REACTIONS (1)
  - HYPOSPADIAS [None]
